FAERS Safety Report 7651545-2 (Version None)
Quarter: 2011Q3

REPORT INFORMATION
  Report Type: 
  Country: None (occurrence: None)
  Receive Date: 20110802
  Receipt Date: 20110720
  Transmission Date: 20111222
  Serious: Yes (Other)
  Sender: FDA-Public Use
  Company Number: GB-BAUSCH-2011BL004941

PATIENT
  Age: 34 Year
  Sex: Male

DRUGS (6)
  1. DIAZEPAM [Concomitant]
     Dates: start: 20110512, end: 20110520
  2. NORMABEL (DIAZEPAM) [Concomitant]
     Route: 042
     Dates: start: 20110516
  3. KETOPROFEN [Suspect]
     Route: 048
     Dates: start: 20110515, end: 20110517
  4. VOLTAREN [Suspect]
     Indication: BACK PAIN
     Route: 048
     Dates: start: 20110517, end: 20110520
  5. DEXAMETHASONE [Suspect]
     Indication: PRODUCT USED FOR UNKNOWN INDICATION
     Route: 042
     Dates: start: 20110512, end: 20110517
  6. KETOPROFEN [Suspect]
     Indication: BACK PAIN
     Route: 042
     Dates: start: 20110512, end: 20110516

REACTIONS (3)
  - DRUG INTERACTION [None]
  - GASTROINTESTINAL INFLAMMATION [None]
  - ALLERGIC COLITIS [None]
